FAERS Safety Report 20728105 (Version 1)
Quarter: 2022Q2

REPORT INFORMATION
  Report Type: Spontaneous
  Country: US (occurrence: US)
  Receive Date: 20220420
  Receipt Date: 20220420
  Transmission Date: 20220721
  Serious: Yes (Death, Other)
  Sender: FDA-Public Use
  Company Number: US-GILEAD-2022-0578282

PATIENT
  Age: 37 Year
  Sex: Female
  Weight: 63.8 kg

DRUGS (1)
  1. TECARTUS [Suspect]
     Active Substance: BREXUCABTAGENE AUTOLEUCEL
     Indication: Acute lymphocytic leukaemia
     Dosage: UNK
     Route: 065
     Dates: start: 20220124, end: 20220124

REACTIONS (21)
  - Death [Fatal]
  - Cytokine release syndrome [Unknown]
  - Ileus [Unknown]
  - Immune effector cell-associated neurotoxicity syndrome [Recovering/Resolving]
  - Encephalopathy [Unknown]
  - Nausea [Recovering/Resolving]
  - Vomiting [Unknown]
  - Tachycardia [Unknown]
  - Hyperbilirubinaemia [Recovering/Resolving]
  - Malaise [Recovering/Resolving]
  - Aphasia [Unknown]
  - Fatigue [Unknown]
  - Agitation [Unknown]
  - Confusional state [Unknown]
  - Somnolence [Unknown]
  - Incontinence [Unknown]
  - Hypofibrinogenaemia [Unknown]
  - Hypoalbuminaemia [Unknown]
  - Hypervolaemia [Unknown]
  - Aspartate aminotransferase increased [Unknown]
  - Arthralgia [Unknown]

NARRATIVE: CASE EVENT DATE: 20220124
